FAERS Safety Report 6287931-5 (Version None)
Quarter: 2009Q3

REPORT INFORMATION
  Report Type: 
  Country: None (occurrence: None)
  Receive Date: 20090729
  Receipt Date: 20090723
  Transmission Date: 20100115
  Serious: Yes (Hospitalization)
  Sender: FDA-Public Use
  Company Number: CH-BRISTOL-MYERS SQUIBB COMPANY-14715205

PATIENT
  Age: 60 Year
  Sex: Female

DRUGS (5)
  1. ABILIFY [Interacting]
     Indication: BIPOLAR DISORDER
     Route: 048
     Dates: start: 20090612
  2. ANAFRANIL [Suspect]
     Indication: BIPOLAR DISORDER
     Route: 048
     Dates: start: 20090614, end: 20090701
  3. TRILEPTAL [Concomitant]
     Indication: BIPOLAR DISORDER
     Dosage: GRADUALLY INCREASED TO 1200MG.
     Route: 048
     Dates: start: 20090629
  4. KETOCONAZOLE [Concomitant]
  5. CARBAMAZEPINE [Concomitant]

REACTIONS (2)
  - ANGLE CLOSURE GLAUCOMA [None]
  - DRUG INTERACTION [None]
